FAERS Safety Report 5508286-7 (Version None)
Quarter: 2007Q4

REPORT INFORMATION
  Report Type: 
  Country: None (occurrence: None)
  Receive Date: 20071106
  Receipt Date: 20071016
  Transmission Date: 20080405
  Serious: No
  Sender: FDA-Public Use
  Company Number: US-BOEHRINGER INGELHEIM PHARMACEUTICALS, INC.-2007-BP-06447BP

PATIENT
  Sex: Female

DRUGS (4)
  1. SPIRIVA [Suspect]
     Route: 055
     Dates: start: 20051101
  2. DIABETIC MEDICATION [Concomitant]
     Indication: DIABETES MELLITUS
  3. ALBUTEROL [Concomitant]
  4. LASIX [Concomitant]

REACTIONS (2)
  - DIZZINESS [None]
  - PAROSMIA [None]
